FAERS Safety Report 7986983-1 (Version None)
Quarter: 2011Q4

REPORT INFORMATION
  Report Type: 
  Country: None (occurrence: None)
  Receive Date: 20111216
  Receipt Date: 20111207
  Transmission Date: 20120403
  Serious: Yes (Other)
  Sender: FDA-Public Use
  Company Number: US-JNJFOC-20111203316

PATIENT
  Sex: Female
  Weight: 72.58 kg

DRUGS (5)
  1. NIFEDIAC [Concomitant]
     Indication: BLOOD PRESSURE
  2. FOLIC ACID [Concomitant]
     Indication: ARTHRITIS
  3. REMICADE [Suspect]
     Indication: PRODUCT USED FOR UNKNOWN INDICATION
     Route: 042
  4. CAPTOPRIL [Concomitant]
     Indication: BLOOD PRESSURE
  5. METOPROLOL TARTRATE [Concomitant]
     Indication: BLOOD PRESSURE

REACTIONS (4)
  - ARTHRITIS [None]
  - PSORIASIS [None]
  - RASH [None]
  - DRY SKIN [None]
